FAERS Safety Report 17153781 (Version 1)
Quarter: 2019Q4

REPORT INFORMATION
  Report Type: Spontaneous
  Country: US (occurrence: US)
  Receive Date: 20191213
  Receipt Date: 20191213
  Transmission Date: 20200122
  Serious: Yes (Other)
  Sender: FDA-Public Use
  Company Number: US-TEVA-2019-US-1151991

PATIENT
  Age: 25 Year
  Sex: Male

DRUGS (2)
  1. LANSOPRAZOLE TEVA [Suspect]
     Active Substance: LANSOPRAZOLE
     Route: 065
  2. LANSOPRAZOLE TEVA [Suspect]
     Active Substance: LANSOPRAZOLE
     Dosage: ORALLY DISINTEGRATING TABLETS
     Route: 065

REACTIONS (10)
  - Malaise [Unknown]
  - Haematemesis [Unknown]
  - Speech disorder [Unknown]
  - Cough [Unknown]
  - Wrong technique in product usage process [Unknown]
  - Vomiting [Unknown]
  - Gastrooesophageal reflux disease [Unknown]
  - Feeding intolerance [Unknown]
  - Influenza like illness [Unknown]
  - Gait inability [Unknown]
